FAERS Safety Report 6234399-0 (Version None)
Quarter: 2009Q2

REPORT INFORMATION
  Report Type: 
  Country: None (occurrence: None)
  Receive Date: 20090618
  Receipt Date: 20090609
  Transmission Date: 20091009
  Serious: Yes (Other)
  Sender: FDA-Public Use
  Company Number: FR-GENENTECH-284497

PATIENT
  Sex: Male

DRUGS (1)
  1. SOMATROPIN [Suspect]
     Indication: GROWTH HORMONE DEFICIENCY
     Dosage: 2.6 MG, QD
     Route: 065
     Dates: start: 20071001

REACTIONS (1)
  - LYMPHADENOPATHY [None]
